FAERS Safety Report 14607920 (Version 2)
Quarter: 2018Q2

REPORT INFORMATION
  Report Type: Spontaneous
  Country: JP (occurrence: JP)
  Receive Date: 20180307
  Receipt Date: 20180402
  Transmission Date: 20180711
  Serious: Yes (Other)
  Sender: FDA-Public Use
  Company Number: JP-SA-2018SA061111

PATIENT
  Age: 60 Year
  Sex: Male

DRUGS (2)
  1. IMMUNOBLADDER [Suspect]
     Active Substance: BACILLUS CALMETTE-GUERIN ANTIGEN, UNSPECIFIED SUBSTRAIN
     Indication: BLADDER CANCER
     Route: 043
  2. BCG FOR IMMUNOTHERAPY [Suspect]
     Active Substance: BACILLUS CALMETTE-GUERIN ANTIGEN, UNSPECIFIED SUBSTRAIN
     Indication: BLADDER CANCER
     Route: 043

REACTIONS (6)
  - Cough [Unknown]
  - Aortic aneurysm [Unknown]
  - Disseminated Bacillus Calmette-Guerin infection [Unknown]
  - Disseminated tuberculosis [Unknown]
  - Lymph node tuberculosis [Unknown]
  - Weight decreased [Unknown]
